FAERS Safety Report 11183239 (Version 4)
Quarter: 2015Q3

REPORT INFORMATION
  Report Type: Report from Study
  Country: BR (occurrence: BR)
  Receive Date: 20150611
  Receipt Date: 20150722
  Transmission Date: 20151125
  Serious: Yes (Hospitalization)
  Sender: FDA-Public Use
  Company Number: PHHY2015BR024615

PATIENT
  Age: 59 Year
  Sex: Female
  Weight: 55 kg

DRUGS (10)
  1. PREDNISONE. [Concomitant]
     Active Substance: PREDNISONE
     Indication: ASTHMA
     Dosage: 1 DF, QD
     Route: 048
     Dates: start: 2012
  2. AZITHROMYCIN [Concomitant]
     Active Substance: AZITHROMYCIN ANHYDROUS
     Indication: LUNG INFECTION
     Dosage: 1 DF, QD
     Route: 048
     Dates: start: 2012
  3. AEROLIN [Concomitant]
     Active Substance: ALBUTEROL
     Indication: ASTHMA
     Dosage: 3 DF, QD
     Route: 055
  4. XOLAIR [Suspect]
     Active Substance: OMALIZUMAB
     Indication: ASTHMA
     Dosage: 1 DF, EVERY 15 DAYS
     Route: 058
     Dates: start: 201411, end: 20150120
  5. PREDNISOLONE. [Concomitant]
     Active Substance: PREDNISOLONE
     Indication: PRODUCT USED FOR UNKNOWN INDICATION
     Dosage: 2 DF, QD (STARTED 3 YEARS AGO)
     Route: 048
  6. AEROGOLD [Concomitant]
     Indication: ASTHMA
     Dosage: 3 DF, QD
     Route: 055
  7. XOLAIR [Suspect]
     Active Substance: OMALIZUMAB
     Indication: EMPHYSEMA
  8. PREDNISONE. [Concomitant]
     Active Substance: PREDNISONE
     Indication: EMPHYSEMA
  9. LORITIL [Concomitant]
     Active Substance: LORATADINE
     Indication: HYPERSENSITIVITY
     Dosage: 1 DF, QD
     Route: 048
     Dates: start: 2012
  10. ALENIA                             /01538101/ [Concomitant]
     Active Substance: BUDESONIDE\FORMOTEROL FUMARATE
     Indication: ASTHMA
     Dosage: UNK, QD (1 OR 2 INHALATIONS DAILY (STARTED 3 YEARS AGO)
     Route: 055

REACTIONS (7)
  - Product used for unknown indication [Unknown]
  - Lung infection [Recovering/Resolving]
  - Tremor [Not Recovered/Not Resolved]
  - Feeling abnormal [Not Recovered/Not Resolved]
  - Asthmatic crisis [Recovering/Resolving]
  - Asthma [Recovered/Resolved]
  - Dyspnoea [Not Recovered/Not Resolved]

NARRATIVE: CASE EVENT DATE: 20150606
